FAERS Safety Report 12795717 (Version 1)
Quarter: 2016Q3

REPORT INFORMATION
  Report Type: Report from Study
  Country: US (occurrence: US)
  Receive Date: 20160929
  Receipt Date: 20160929
  Transmission Date: 20161109
  Serious: Yes (Hospitalization)
  Sender: FDA-Public Use
  Company Number: US-ABBVIE-16K-163-1738771-00

PATIENT
  Age: 57 Year
  Sex: Male

DRUGS (2)
  1. HUMIRA [Suspect]
     Active Substance: ADALIMUMAB
     Indication: PRODUCT USED FOR UNKNOWN INDICATION
     Route: 058
     Dates: start: 20160808, end: 20160808
  2. HUMIRA [Suspect]
     Active Substance: ADALIMUMAB
     Route: 058
     Dates: start: 20160824, end: 20160824

REACTIONS (9)
  - Disturbance in attention [Recovering/Resolving]
  - Euphoric mood [Recovering/Resolving]
  - Aggression [Recovered/Resolved]
  - Chest pain [Unknown]
  - Anaemia [Unknown]
  - Delusion [Recovering/Resolving]
  - Weight decreased [Not Recovered/Not Resolved]
  - Cerebrovascular accident [Unknown]
  - Laceration [Unknown]

NARRATIVE: CASE EVENT DATE: 2016
